FAERS Safety Report 17197794 (Version 3)
Quarter: 2020Q1

REPORT INFORMATION
  Report Type: Spontaneous
  Country: US (occurrence: US)
  Receive Date: 20191224
  Receipt Date: 20200309
  Transmission Date: 20200409
  Serious: No
  Sender: FDA-Public Use
  Company Number: US-AMGEN-USASP2019212247

PATIENT
  Age: 53 Year
  Sex: Female
  Weight: 82.99 kg

DRUGS (6)
  1. NEULASTA [Suspect]
     Active Substance: PEGFILGRASTIM
     Dosage: 6 MILLIGRAM
     Route: 065
  2. PERJETA [Concomitant]
     Active Substance: PERTUZUMAB
  3. DOCETAXEL. [Concomitant]
     Active Substance: DOCETAXEL
  4. NEULASTA [Suspect]
     Active Substance: PEGFILGRASTIM
     Indication: PRODUCT USED FOR UNKNOWN INDICATION
     Dosage: 6 MILLIGRAM
     Route: 065
  5. CARBOPLATIN. [Concomitant]
     Active Substance: CARBOPLATIN
  6. HERCEPTIN [Concomitant]
     Active Substance: TRASTUZUMAB

REACTIONS (2)
  - Wrong technique in product usage process [Unknown]
  - Application site pain [Unknown]

NARRATIVE: CASE EVENT DATE: 201912
